FAERS Safety Report 10010071 (Version 1)
Quarter: 2014Q1

REPORT INFORMATION
  Report Type: Spontaneous
  Country: US (occurrence: US)
  Receive Date: 20140312
  Receipt Date: 20140312
  Transmission Date: 20141002
  Serious: No
  Sender: FDA-Public Use
  Company Number: US-INCYTE CORPORATION-2013IN001095

PATIENT
  Age: 80 Year
  Sex: Male

DRUGS (9)
  1. JAKAFI [Suspect]
     Indication: MYELOFIBROSIS
     Dosage: 20 MG, BID
     Route: 048
     Dates: start: 20130420
  2. SPIRIVA [Concomitant]
  3. METOPROLOL [Concomitant]
  4. SIMVASTATIN [Concomitant]
  5. VALACYCLOVIR [Concomitant]
  6. WARFARIN [Concomitant]
  7. FLOMAX [Concomitant]
  8. VITAMIN D [Concomitant]
  9. TYLENOL [Concomitant]

REACTIONS (1)
  - Oral candidiasis [Not Recovered/Not Resolved]
